FAERS Safety Report 9105543 (Version 1)
Quarter: 2013Q1

REPORT INFORMATION
  Report Type: Spontaneous
  Country: US (occurrence: US)
  Receive Date: 20130221
  Receipt Date: 20130221
  Transmission Date: 20140127
  Serious: No
  Sender: FDA-Public Use
  Company Number: US-TEVA-338375USA

PATIENT
  Sex: Male
  Weight: 72.64 kg

DRUGS (5)
  1. TREANDA [Suspect]
     Indication: NON-HODGKIN^S LYMPHOMA
     Route: 042
     Dates: start: 201110
  2. RITUXIMAB [Concomitant]
     Dates: start: 201110
  3. DIPHENHYDRAMINE HYDROCHLORIDE [Concomitant]
     Indication: PREMEDICATION
  4. STEROID ANTIBACTERIALS [Concomitant]
     Indication: PREMEDICATION
  5. ANTI-NAUSEA [Concomitant]
     Indication: PREMEDICATION

REACTIONS (2)
  - Memory impairment [Not Recovered/Not Resolved]
  - Rash [Not Recovered/Not Resolved]
